FAERS Safety Report 17405157 (Version 1)
Quarter: 2020Q1

REPORT INFORMATION
  Report Type: Spontaneous
  Country: CA (occurrence: CA)
  Receive Date: 20200212
  Receipt Date: 20200212
  Transmission Date: 20200409
  Serious: Yes (Other)
  Sender: FDA-Public Use
  Company Number: CA-AUROBINDO-AUR-APL-2020-006244

PATIENT
  Age: 59 Year
  Sex: Male

DRUGS (10)
  1. TETRABENAZINE. [Concomitant]
     Active Substance: TETRABENAZINE
     Indication: TARDIVE DYSKINESIA
     Dosage: UNK
     Route: 065
  2. BENZTROPINE. [Suspect]
     Active Substance: BENZTROPINE
     Indication: TARDIVE DYSKINESIA
     Dosage: UNK
     Route: 065
  3. BENZTROPINE. [Suspect]
     Active Substance: BENZTROPINE
     Indication: TARDIVE DYSKINESIA
     Dosage: UNK
     Route: 065
  4. BENZTROPINE. [Suspect]
     Active Substance: BENZTROPINE
     Indication: AKATHISIA
  5. PROPRANOLOL HYDROCHLORIDE. [Suspect]
     Active Substance: PROPRANOLOL HYDROCHLORIDE
     Indication: AKATHISIA
  6. PROPRANOLOL HYDROCHLORIDE. [Suspect]
     Active Substance: PROPRANOLOL HYDROCHLORIDE
     Indication: TARDIVE DYSKINESIA
     Dosage: UNK
     Route: 065
  7. TETRABENAZINE. [Concomitant]
     Active Substance: TETRABENAZINE
     Indication: AKATHISIA
  8. GABAPENTIN. [Suspect]
     Active Substance: GABAPENTIN
     Indication: TARDIVE DYSKINESIA
     Dosage: UNK
     Route: 065
  9. GABAPENTIN. [Suspect]
     Active Substance: GABAPENTIN
     Indication: AKATHISIA
  10. BENZTROPINE. [Suspect]
     Active Substance: BENZTROPINE
     Indication: AKATHISIA

REACTIONS (1)
  - Drug ineffective [Unknown]
